FAERS Safety Report 20210563 (Version 1)
Quarter: 2021Q4

REPORT INFORMATION
  Report Type: Report from Study
  Country: US (occurrence: US)
  Receive Date: 20211221
  Receipt Date: 20211221
  Transmission Date: 20220303
  Serious: Yes (Death)
  Sender: FDA-Public Use
  Company Number: US-Taiho Oncology Inc-EU-2021-03935

PATIENT
  Age: 67 Year
  Sex: Female
  Weight: 59 kg

DRUGS (7)
  1. LONSURF [Suspect]
     Active Substance: TIPIRACIL HYDROCHLORIDE\TRIFLURIDINE
     Indication: Hepatic cancer
     Dosage: CYCLE 2
     Route: 048
     Dates: start: 20211113, end: 20211213
  2. ACYCLOVIR [Concomitant]
     Active Substance: ACYCLOVIR
  3. ASPRIN 81 [Concomitant]
  4. COLACE [Concomitant]
     Active Substance: DOCUSATE SODIUM
  5. FENTANYL [Concomitant]
     Active Substance: FENTANYL
  6. GABAPENTIN [Concomitant]
     Active Substance: GABAPENTIN
  7. INVOKANA [Concomitant]
     Active Substance: CANAGLIFLOZIN

REACTIONS (2)
  - Death [Fatal]
  - Off label use [Unknown]

NARRATIVE: CASE EVENT DATE: 20211213
